FAERS Safety Report 8043331-9 (Version None)
Quarter: 2012Q1

REPORT INFORMATION
  Report Type: 
  Country: None (occurrence: None)
  Receive Date: 20120112
  Receipt Date: 20120105
  Transmission Date: 20120608
  Serious: Yes (Hospitalization)
  Sender: FDA-Public Use
  Company Number: JP-GLAXOSMITHKLINE-B0774257A

PATIENT
  Sex: Female

DRUGS (12)
  1. TRIAZOLAM [Concomitant]
     Route: 048
  2. LIOTHYRONINE SODIUM [Concomitant]
     Route: 048
  3. ARTANE [Concomitant]
     Route: 048
  4. LAMICTAL [Suspect]
     Indication: BIPOLAR I DISORDER
     Route: 048
     Dates: start: 20110901
  5. LITHIUM CARBONATE [Concomitant]
     Route: 048
  6. ABILIFY [Concomitant]
     Route: 048
  7. LAMICTAL [Suspect]
     Dosage: 50MG PER DAY
     Route: 048
     Dates: start: 20111201, end: 20111208
  8. LAMICTAL [Suspect]
     Dosage: 75MG PER DAY
     Route: 048
     Dates: start: 20111209, end: 20111221
  9. LAMICTAL [Suspect]
     Dosage: 25MG PER DAY
     Route: 048
     Dates: start: 20111117, end: 20111130
  10. CYMBALTA [Concomitant]
     Route: 048
  11. REMERON [Concomitant]
     Route: 048
  12. LAMICTAL [Suspect]
     Dosage: 100MG PER DAY
     Route: 048
     Dates: start: 20111222, end: 20111229

REACTIONS (3)
  - DEHYDRATION [None]
  - RASH [None]
  - STEVENS-JOHNSON SYNDROME [None]
